FAERS Safety Report 8361313-4 (Version None)
Quarter: 2012Q2

REPORT INFORMATION
  Report Type: 
  Country: None (occurrence: None)
  Receive Date: 20120515
  Receipt Date: 20120510
  Transmission Date: 20120825
  Serious: Yes (Life-Threatening, Hospitalization)
  Sender: FDA-Public Use
  Company Number: CH-MERCK-1205USA02074

PATIENT
  Age: 62 Year
  Sex: Female

DRUGS (12)
  1. PLAVIX [Suspect]
     Indication: CEREBROVASCULAR ACCIDENT
     Route: 048
     Dates: start: 20040101, end: 20120416
  2. NEXIUM [Concomitant]
     Route: 048
  3. NOVORAPID [Concomitant]
     Route: 058
  4. JANUVIA [Suspect]
     Indication: DIABETES MELLITUS
     Route: 048
     Dates: end: 20120416
  5. ATACAND HCT [Concomitant]
     Route: 048
  6. ATORVASTATIN CALCIUM [Concomitant]
     Route: 048
  7. LANTUS [Concomitant]
     Route: 058
  8. MIDAZOLAM HCL [Concomitant]
     Route: 048
  9. OXYCONTIN [Concomitant]
     Route: 048
     Dates: start: 20120201
  10. VOLTAREN [Suspect]
     Indication: FRACTURE
     Route: 048
     Dates: start: 20120201, end: 20120416
  11. REMERON [Suspect]
     Route: 048
  12. LERCANIDIPINE [Concomitant]
     Route: 048

REACTIONS (4)
  - GASTROINTESTINAL HAEMORRHAGE [None]
  - GASTRIC ULCER [None]
  - MELAENA [None]
  - VOMITING [None]
